FAERS Safety Report 8789566 (Version 1)
Quarter: 2012Q4

REPORT INFORMATION
  Report Type: Spontaneous
  Country: US (occurrence: None)
  Receive Date: 20120910
  Receipt Date: 20120910
  Transmission Date: 20130627
  Serious: Yes (Disabling, Other)
  Sender: FDA-Public Use
  Company Number: None

PATIENT
  Age: 57 Year
  Sex: Male
  Weight: 72.58 kg

DRUGS (1)
  1. RECLAST [Suspect]
     Dates: start: 20120828, end: 20120828

REACTIONS (3)
  - Back pain [None]
  - Movement disorder [None]
  - Drug ineffective [None]
